FAERS Safety Report 9220154 (Version 2)
Quarter: 2013Q2

REPORT INFORMATION
  Report Type: Spontaneous
  Country: US (occurrence: US)
  Receive Date: 20130408
  Receipt Date: 20130418
  Transmission Date: 20140414
  Serious: Yes (Other)
  Sender: FDA-Public Use
  Company Number: US-RB-052121-13

PATIENT
  Age: 23 Year
  Sex: Female

DRUGS (4)
  1. MUCINEX FAST-MAX SEVERE CONGESTION + COLD CAPLETS (ACETAMINOPHEN) [Suspect]
     Indication: PRODUCT USED FOR UNKNOWN INDICATION
     Dosage: 2 CAPLETS ONCE ON 26-MAR-2013
     Route: 048
     Dates: start: 20130326
  2. MUCINEX FAST-MAX SEVERE CONGESTION + COLD CAPLETS (GUAIFENESIN) [Suspect]
  3. MUCINEX FAST-MAX SEVERE CONGESTION + COLD CAPLETS [Suspect]
  4. MUCINEX FAST-MAX SEVERE CONGESTION + COLD CAPLETS [Suspect]

REACTIONS (3)
  - Epistaxis [Recovered/Resolved]
  - Pharyngeal haemorrhage [Recovered/Resolved]
  - Nightmare [Recovered/Resolved]
